FAERS Safety Report 5747289-4 (Version None)
Quarter: 2008Q2

REPORT INFORMATION
  Report Type: 
  Country: None (occurrence: None)
  Receive Date: 20080523
  Receipt Date: 20080513
  Transmission Date: 20081010
  Serious: Yes (Hospitalization)
  Sender: FDA-Public Use
  Company Number: FR-JNJFOC-20050302277

PATIENT
  Sex: Female
  Weight: 43 kg

DRUGS (2)
  1. REMICADE [Suspect]
     Indication: CROHN'S DISEASE
     Route: 042
  2. ENTOCORT EC [Concomitant]
     Indication: CROHN'S DISEASE

REACTIONS (6)
  - CROHN'S DISEASE [None]
  - ENTEROCOLONIC FISTULA [None]
  - FISTULA REPAIR [None]
  - ILEECTOMY [None]
  - INTESTINAL OBSTRUCTION [None]
  - PERITONITIS [None]
